FAERS Safety Report 17192804 (Version 2)
Quarter: 2020Q1

REPORT INFORMATION
  Report Type: Report from Study
  Country: US (occurrence: US)
  Receive Date: 20191223
  Receipt Date: 20200323
  Transmission Date: 20200409
  Serious: No
  Sender: FDA-Public Use
  Company Number: US-SA-2019SA355456

PATIENT
  Age: 52 Year
  Sex: Female

DRUGS (1)
  1. DUPILUMAB [Suspect]
     Active Substance: DUPILUMAB
     Indication: RASH
     Dosage: UNK, QOW
     Dates: start: 20191115

REACTIONS (3)
  - Heart rate increased [Unknown]
  - Product use in unapproved indication [Unknown]
  - Aggression [Unknown]

NARRATIVE: CASE EVENT DATE: 2019
